FAERS Safety Report 6138241-8 (Version None)
Quarter: 2009Q1

REPORT INFORMATION
  Report Type: 
  Country: None (occurrence: None)
  Receive Date: 20090331
  Receipt Date: 20090326
  Transmission Date: 20090719
  Serious: Yes (Other)
  Sender: FDA-Public Use
  Company Number: B0536374A

PATIENT
  Sex: Female

DRUGS (5)
  1. SERETIDE [Suspect]
     Indication: ASTHMA
     Dosage: 1PUFF TWICE PER DAY
     Route: 055
  2. VENTOLIN [Suspect]
     Indication: ASTHMA
     Dosage: 200MCG AS REQUIRED
     Route: 055
  3. SERETIDE [Suspect]
     Dosage: 2PUFF TWICE PER DAY
     Route: 055
     Dates: start: 20050101
  4. BENDROFLUAZIDE [Suspect]
     Indication: HYPERTENSION
     Route: 065
     Dates: start: 20050101
  5. CANDESARTAN CILEXETIL [Suspect]
     Indication: HYPERTENSION
     Route: 065
     Dates: start: 20050101

REACTIONS (4)
  - ASTHMA [None]
  - CONDITION AGGRAVATED [None]
  - COUGH [None]
  - PHARYNGEAL DISORDER [None]
